FAERS Safety Report 12249325 (Version 1)
Quarter: 2016Q2

REPORT INFORMATION
  Report Type: Spontaneous
  Country: FR (occurrence: FR)
  Receive Date: 20160408
  Receipt Date: 20160408
  Transmission Date: 20160815
  Serious: Yes (Death)
  Sender: FDA-Public Use
  Company Number: FR-JNJFOC-20160403066

PATIENT
  Age: 61 Year
  Sex: Female

DRUGS (6)
  1. LYSANXIA [Suspect]
     Active Substance: PRAZEPAM
     Indication: ANXIETY
     Dosage: LONG TERM TREATMENT
     Route: 048
  2. STILNOX [Suspect]
     Active Substance: ZOLPIDEM TARTRATE
     Indication: INSOMNIA
     Dosage: LONG TERM TREATMENT
     Route: 048
  3. MOVICOL [Concomitant]
     Active Substance: POLYETHYLENE GLYCOL 3350\POTASSIUM CHLORIDE\SODIUM BICARBONATE\SODIUM CHLORIDE
     Indication: CONSTIPATION
     Dosage: 1-2 SACHETS PER DAY; LOMG TERM TREATMENT
     Route: 048
  4. RISPERDAL [Suspect]
     Active Substance: RISPERIDONE
     Indication: MANIA
     Dosage: LONG TERM TREATMENT
     Route: 048
  5. EFFEXOR [Suspect]
     Active Substance: VENLAFAXINE HYDROCHLORIDE
     Indication: DEPRESSION
     Dosage: 1 CAPSULE PER DAY; LONG TERM TREATMENT
     Route: 065
  6. LYSANXIA [Suspect]
     Active Substance: PRAZEPAM
     Indication: ANXIETY
     Dosage: 40 DROPS (20 MG); IN THE EVENING; LONG TERM TREATMENT
     Route: 048

REACTIONS (1)
  - Aspiration [Fatal]

NARRATIVE: CASE EVENT DATE: 20151206
